FAERS Safety Report 10729431 (Version 2)
Quarter: 2015Q1

REPORT INFORMATION
  Report Type: Spontaneous
  Country: DE (occurrence: DE)
  Receive Date: 20150122
  Receipt Date: 20150222
  Transmission Date: 20150721
  Serious: Yes (Other)
  Sender: FDA-Public Use
  Company Number: GXKR2015DE000615

PATIENT

DRUGS (5)
  1. CITALOPRAM [Suspect]
     Active Substance: CITALOPRAM HYDROBROMIDE
     Indication: DEPRESSION
     Dosage: 40 [MG/D ]/ DOSAGE REDUCTION FROM GW 36
     Route: 064
     Dates: start: 20131004, end: 20140711
  2. FOLSAEURE [Concomitant]
     Active Substance: FOLIC ACID
     Indication: PROPHYLAXIS OF NEURAL TUBE DEFECT
     Dosage: 0.4 [MG/D ]
     Route: 064
     Dates: start: 20131004, end: 20140722
  3. CLOTRIMAZOLE. [Concomitant]
     Active Substance: CLOTRIMAZOLE
     Indication: VULVOVAGINAL MYCOTIC INFECTION
     Route: 064
     Dates: start: 20140220, end: 20140225
  4. MAGNESIUM [Concomitant]
     Active Substance: MAGNESIUM
     Indication: SELF-MEDICATION
     Dosage: 525 [MG/D (175) ]
     Route: 064
     Dates: start: 20140522, end: 20140701
  5. MILCHSAEURE [Concomitant]
     Indication: PROPHYLAXIS OF VAGINAL FLORA IMBALANCE
     Route: 064
     Dates: start: 20140226, end: 20140304

REACTIONS (1)
  - Oxygen saturation abnormal [Recovered/Resolved]

NARRATIVE: CASE EVENT DATE: 20140722
